FAERS Safety Report 4951942-X (Version None)
Quarter: 2006Q1

REPORT INFORMATION
  Report Type: 
  Country: None (occurrence: None)
  Receive Date: 20060320
  Receipt Date: 20060309
  Transmission Date: 20060701
  Serious: Yes (Death)
  Sender: FDA-Public Use
  Company Number: 2006034931

PATIENT
  Age: 25 Year
  Sex: Male

DRUGS (8)
  1. PANTOPRAZOLE SODIUM [Suspect]
     Indication: ILL-DEFINED DISORDER
     Dosage: 40 MG
  2. FOSAMAX [Suspect]
     Indication: OSTEOPOROSIS
     Dosage: 10 MG (1 IN 1 D), ORAL
     Route: 048
  3. ALTACE [Concomitant]
  4. VIOXX [Concomitant]
  5. MONTELUKAST SODIUM (MONTELUKAST SODIUM) [Concomitant]
  6. CRIXIVAN [Concomitant]
  7. COZAAR [Concomitant]
  8. AGGRASTAT [Concomitant]

REACTIONS (6)
  - ANTIPHOSPHOLIPID SYNDROME [None]
  - CARDIOVASCULAR DISORDER [None]
  - EROSIVE OESOPHAGITIS [None]
  - MYOCARDIAL INFARCTION [None]
  - SUDDEN DEATH [None]
  - VENTRICULAR ARRHYTHMIA [None]
